FAERS Safety Report 5749070-9 (Version None)
Quarter: 2008Q2

REPORT INFORMATION
  Report Type: 
  Country: None (occurrence: None)
  Receive Date: 20080527
  Receipt Date: 20080515
  Transmission Date: 20081010
  Serious: Yes (Other)
  Sender: FDA-Public Use
  Company Number: US-SANOFI-SYNTHELABO-A03200801873

PATIENT
  Age: 69 Year
  Sex: Male

DRUGS (2)
  1. INSULIN [Concomitant]
     Indication: DRUG USE FOR UNKNOWN INDICATION
     Dosage: UNK
     Route: 065
  2. AMBIEN CR [Suspect]
     Indication: INSOMNIA
     Dosage: 1 TO 2 TABLETS PRN
     Route: 048
     Dates: start: 20071101, end: 20080501

REACTIONS (3)
  - ROAD TRAFFIC ACCIDENT [None]
  - SOMNAMBULISM [None]
  - THERAPEUTIC RESPONSE DECREASED [None]
